FAERS Safety Report 23967310 (Version 3)
Quarter: 2024Q4

REPORT INFORMATION
  Report Type: Spontaneous
  Country: FR (occurrence: FR)
  Receive Date: 20240612
  Receipt Date: 20241004
  Transmission Date: 20250114
  Serious: Yes (Other)
  Sender: PFIZER
  Company Number: None

PATIENT
  Age: 36 Year
  Sex: Female
  Weight: 45 kg

DRUGS (11)
  1. ZITHROMAX [Suspect]
     Active Substance: AZITHROMYCIN DIHYDRATE
     Indication: Prophylaxis
     Dosage: 500 MG, WEEKLY
     Route: 048
  2. INIPOMP [Suspect]
     Active Substance: PANTOPRAZOLE SODIUM
     Indication: Prophylaxis
     Dosage: 40 MG, 1X/DAY
     Route: 048
     Dates: end: 202403
  3. ATENOLOL [Suspect]
     Active Substance: ATENOLOL
     Indication: Graft versus host disease
     Dosage: 100 MG, 1X/DAY
     Route: 048
  4. AMLODIPINE BESYLATE [Suspect]
     Active Substance: AMLODIPINE BESYLATE
     Indication: Graft versus host disease
     Dosage: 1 DF, 1X/DAY
     Route: 048
  5. VALACYCLOVIR HYDROCHLORIDE [Suspect]
     Active Substance: VALACYCLOVIR HYDROCHLORIDE
     Indication: Prophylaxis
     Dosage: 1 DF, 1X/DAY
     Route: 048
  6. CELLCEPT [Suspect]
     Active Substance: MYCOPHENOLATE MOFETIL
     Indication: Graft versus host disease
     Dosage: 1 DF, 1X/DAY (FORMULATION: 1G/5ML)
     Route: 048
     Dates: start: 20190814
  7. AMOXICILLIN [Suspect]
     Active Substance: AMOXICILLIN
     Indication: Prophylaxis
     Dosage: 1 G, 1X/DAY
     Route: 048
  8. PENICILLIN V [Suspect]
     Active Substance: PENICILLIN V
     Indication: Prophylaxis
     Dosage: 2000000 IU, 1X/DAY
     Route: 048
  9. PAROMOMYCIN SULFATE [Concomitant]
     Active Substance: PAROMOMYCIN SULFATE
     Dosage: UNK
     Route: 048
     Dates: start: 20230717, end: 20230723
  10. SYMBICORT [Concomitant]
     Active Substance: BUDESONIDE\FORMOTEROL FUMARATE DIHYDRATE
     Dosage: 4 DF, 1X/DAY
     Route: 055
  11. NITAZOXANIDE [Concomitant]
     Active Substance: NITAZOXANIDE
     Dosage: 1 GRAM, QD
     Route: 048
     Dates: start: 20230709, end: 20230724

REACTIONS (2)
  - Cholestasis [Not Recovered/Not Resolved]
  - Off label use [Unknown]

NARRATIVE: CASE EVENT DATE: 20230701
